FAERS Safety Report 16858538 (Version 1)
Quarter: 2019Q3

REPORT INFORMATION
  Report Type: Spontaneous
  Country: US (occurrence: US)
  Receive Date: 20190805
  Receipt Date: 20190805
  Transmission Date: 20191005
  Serious: Yes (Other)
  Sender: FDA-Public Use
  Company Number: None

PATIENT
  Age: 66 Year
  Sex: Male

DRUGS (2)
  1. DIGOXIN. [Suspect]
     Active Substance: DIGOXIN
  2. DIGOXIN. [Suspect]
     Active Substance: DIGOXIN

REACTIONS (7)
  - Decreased appetite [None]
  - Septic shock [None]
  - Bradycardia [None]
  - Electrocardiogram ST segment abnormal [None]
  - Oedema [None]
  - Ascites [None]
  - Cardioactive drug level increased [None]

NARRATIVE: CASE EVENT DATE: 20180310
